FAERS Safety Report 10061346 (Version 1)
Quarter: 2014Q2

REPORT INFORMATION
  Report Type: Report from Study
  Country: US (occurrence: US)
  Receive Date: 20140407
  Receipt Date: 20140407
  Transmission Date: 20141212
  Serious: Yes (Other)
  Sender: FDA-Public Use
  Company Number: US-ROCHE-1372430

PATIENT
  Age: 34 Year
  Sex: Female
  Weight: 52.66 kg

DRUGS (5)
  1. ACTEMRA [Suspect]
     Indication: RHEUMATOID ARTHRITIS
     Route: 058
     Dates: start: 201401
  2. ACTEMRA [Suspect]
     Dosage: PATIENT RECEIVED INFUSION IN FEB/2014, MAR/2014 AND 20/MAR/2014
     Route: 058
  3. NEURONTIN (UNITED STATES) [Concomitant]
     Route: 065
  4. PREDNISONE [Concomitant]
     Indication: RHEUMATOID ARTHRITIS
     Route: 065
  5. MIRALAX [Concomitant]
     Route: 065

REACTIONS (6)
  - Acute coronary syndrome [Unknown]
  - White blood cell count decreased [Unknown]
  - Blood cholesterol increased [Unknown]
  - Acne [Not Recovered/Not Resolved]
  - Paraesthesia [Not Recovered/Not Resolved]
  - Paraesthesia [Not Recovered/Not Resolved]
